FAERS Safety Report 4648980-3 (Version None)
Quarter: 2005Q2

REPORT INFORMATION
  Report Type: 
  Country: None (occurrence: None)
  Receive Date: 20050427
  Receipt Date: 20050412
  Transmission Date: 20051028
  Serious: Yes (Death)
  Sender: FDA-Public Use
  Company Number: AZAUS200500138

PATIENT
  Age: 68 Year
  Sex: Male

DRUGS (2)
  1. VIDAZA [Suspect]
     Indication: MYELODYSPLASTIC SYNDROME
     Dosage: SUBCUTANEOUS
     Route: 058
  2. THALOMID [Suspect]
     Indication: MYELODYSPLASTIC SYNDROME
     Dosage: 50 MG (50 MG, DAILY), ORAL
     Route: 048
     Dates: start: 20020101, end: 20041101

REACTIONS (2)
  - DISEASE PROGRESSION [None]
  - FEBRILE NEUTROPENIA [None]
